FAERS Safety Report 7228070-6 (Version None)
Quarter: 2011Q1

REPORT INFORMATION
  Report Type: 
  Country: None (occurrence: None)
  Receive Date: 20110114
  Receipt Date: 20100322
  Transmission Date: 20110831
  Serious: No
  Sender: FDA-Public Use
  Company Number: US-PFIZER INC-2010037472

PATIENT
  Sex: Male

DRUGS (4)
  1. LASIX [Suspect]
     Dosage: 10 MG, 1X/DAY
  2. EMCYT [Suspect]
     Indication: PROSTATE CANCER
     Dosage: 6 CAPSULES THREE TIMES DAILY
  3. LASIX [Suspect]
     Dosage: 10 MG, ALTERNATE DAY
  4. TAXOTERE [Suspect]
     Dosage: UNK

REACTIONS (2)
  - FATIGUE [None]
  - OEDEMA PERIPHERAL [None]
